FAERS Safety Report 7118424-0 (Version None)
Quarter: 2010Q4

REPORT INFORMATION
  Report Type: 
  Country: None (occurrence: None)
  Receive Date: 20101123
  Receipt Date: 20101112
  Transmission Date: 20110411
  Serious: Yes (Other)
  Sender: FDA-Public Use
  Company Number: US-ELI_LILLY_AND_COMPANY-US201010005840

PATIENT
  Sex: Female
  Weight: 68.027 kg

DRUGS (2)
  1. EFFIENT [Suspect]
     Indication: DEEP VEIN THROMBOSIS
     Dosage: 5 MG, DAILY (1/D)
     Route: 048
     Dates: start: 20100319, end: 20100404
  2. ASPIRIN [Concomitant]
     Dosage: 81 MG, UNKNOWN
     Route: 065

REACTIONS (8)
  - ABNORMAL DREAMS [None]
  - CONTUSION [None]
  - HEADACHE [None]
  - INSOMNIA [None]
  - NIGHTMARE [None]
  - OFF LABEL USE [None]
  - PAIN IN EXTREMITY [None]
  - PETECHIAE [None]
